FAERS Safety Report 14924180 (Version 2)
Quarter: 2018Q2

REPORT INFORMATION
  Report Type: Spontaneous
  Country: US (occurrence: US)
  Receive Date: 20180522
  Receipt Date: 20180606
  Transmission Date: 20180711
  Serious: No
  Sender: FDA-Public Use
  Company Number: US-009507513-1805USA007875

PATIENT
  Age: 37 Year
  Sex: Female
  Weight: 102.4 kg

DRUGS (4)
  1. NEXPLANON [Suspect]
     Active Substance: ETONOGESTREL
     Indication: CONTRACEPTION
     Dosage: IMPLANT
     Route: 058
     Dates: start: 2013, end: 2016
  2. ULTRAM [Suspect]
     Active Substance: TRAMADOL HYDROCHLORIDE
  3. NEXPLANON [Suspect]
     Active Substance: ETONOGESTREL
     Dosage: 3 YEAR IMPLANT IN LEFT ARM
     Route: 059
     Dates: start: 20180517
  4. EFFEXOR [Suspect]
     Active Substance: VENLAFAXINE HYDROCHLORIDE

REACTIONS (9)
  - Vomiting [Unknown]
  - Headache [Unknown]
  - Rash pruritic [Unknown]
  - Abdominal pain upper [Unknown]
  - Alopecia [Unknown]
  - Amenorrhoea [Unknown]
  - Feeling abnormal [Unknown]
  - Menstruation delayed [Not Recovered/Not Resolved]
  - Amenorrhoea [Recovered/Resolved]

NARRATIVE: CASE EVENT DATE: 2013
